FAERS Safety Report 5215292-9 (Version None)
Quarter: 2007Q1

REPORT INFORMATION
  Report Type: 
  Country: None (occurrence: None)
  Receive Date: 20070117
  Receipt Date: 20070102
  Transmission Date: 20070707
  Serious: Yes (Death, Hospitalization, Congenital Anomaly, Other)
  Sender: FDA-Public Use
  Company Number: 2007RR-05040

PATIENT
  Sex: Female

DRUGS (2)
  1. FLUOXETINE [Suspect]
     Dates: start: 20060914
  2. SERTRALINE [Suspect]
     Indication: ANXIETY
     Dosage: 50 MG, QD, ORAL; 100 MG
     Route: 048
     Dates: start: 20060323, end: 20060914

REACTIONS (7)
  - CAESAREAN SECTION [None]
  - CONGENITAL BRAIN DAMAGE [None]
  - DEATH NEONATAL [None]
  - DRUG EXPOSURE DURING PREGNANCY [None]
  - ENCEPHALITIS [None]
  - NEONATAL ASPHYXIA [None]
  - PLACENTA PRAEVIA [None]
